FAERS Safety Report 16421049 (Version 2)
Quarter: 2020Q1

REPORT INFORMATION
  Report Type: Report from Study
  Country: JP (occurrence: JP)
  Receive Date: 20190612
  Receipt Date: 20200303
  Transmission Date: 20200409
  Serious: Yes (Other)
  Sender: FDA-Public Use
  Company Number: JP-CLINIGEN GROUP PLC/ CLINIGEN HEALTHCARE LTD-JP-CLGN-19-00360

PATIENT
  Age: 68 Year
  Sex: Female
  Weight: 76.3 kg

DRUGS (20)
  1. SOLULACT [Concomitant]
     Indication: MEDICATION DILUTION
     Route: 041
     Dates: start: 20160617, end: 20160619
  2. CISPLATIN. [Suspect]
     Active Substance: CISPLATIN
     Indication: UTERINE CANCER
     Route: 042
     Dates: start: 20160617, end: 20160617
  3. DEXART [Concomitant]
     Active Substance: DEXAMETHASONE SODIUM PHOSPHATE
     Dates: start: 20160619, end: 20160620
  4. PROEMEND [Concomitant]
     Active Substance: FOSAPREPITANT
     Indication: PRODUCT USED FOR UNKNOWN INDICATION
     Route: 041
     Dates: start: 20160708, end: 20160708
  5. DEXART [Concomitant]
     Active Substance: DEXAMETHASONE SODIUM PHOSPHATE
     Dates: start: 20160708, end: 20160708
  6. ADRIACIN [Suspect]
     Active Substance: DOXORUBICIN HYDROCHLORIDE
     Indication: UTERINE CANCER
     Route: 042
     Dates: start: 20160617, end: 20160617
  7. SAVENE [Suspect]
     Active Substance: DEXRAZOXANE
     Route: 041
     Dates: start: 20160619, end: 20160619
  8. ADRIACIN [Suspect]
     Active Substance: DOXORUBICIN HYDROCHLORIDE
     Route: 042
     Dates: start: 20160708, end: 20160708
  9. DEXART [Concomitant]
     Active Substance: DEXAMETHASONE SODIUM PHOSPHATE
     Dates: start: 20160709, end: 20160709
  10. DEXART [Concomitant]
     Active Substance: DEXAMETHASONE SODIUM PHOSPHATE
     Dates: start: 20160710, end: 20160711
  11. SAVENE [Suspect]
     Active Substance: DEXRAZOXANE
     Indication: INFUSION SITE EXTRAVASATION
     Route: 041
     Dates: start: 20160617, end: 20160618
  12. CISPLATIN. [Suspect]
     Active Substance: CISPLATIN
     Route: 042
     Dates: start: 20160708, end: 20160708
  13. DEXART [Concomitant]
     Active Substance: DEXAMETHASONE SODIUM PHOSPHATE
     Indication: PRODUCT USED FOR UNKNOWN INDICATION
     Dates: start: 20160618, end: 20160618
  14. FUROSEMIDE. [Concomitant]
     Active Substance: FUROSEMIDE
     Indication: PRODUCT USED FOR UNKNOWN INDICATION
     Dates: start: 20160620, end: 20160620
  15. PRIMPERAN [Concomitant]
     Active Substance: METOCLOPRAMIDE HYDROCHLORIDE
     Indication: PRODUCT USED FOR UNKNOWN INDICATION
     Route: 048
  16. WYPAX [Concomitant]
     Active Substance: LORAZEPAM
     Indication: PRODUCT USED FOR UNKNOWN INDICATION
     Route: 048
  17. TENELIA [Concomitant]
     Active Substance: TENELIGLIPTIN
     Indication: DIABETES MELLITUS
     Route: 048
  18. KYTRIL [Concomitant]
     Active Substance: GRANISETRON HYDROCHLORIDE
     Indication: PRODUCT USED FOR UNKNOWN INDICATION
     Route: 041
     Dates: start: 20160708, end: 20160708
  19. MAGMITT [Concomitant]
     Active Substance: MAGNESIUM OXIDE
     Indication: PRODUCT USED FOR UNKNOWN INDICATION
     Route: 048
  20. AMLODIN [Concomitant]
     Active Substance: AMLODIPINE BESYLATE
     Indication: PRODUCT USED FOR UNKNOWN INDICATION
     Route: 048

REACTIONS (5)
  - Alanine aminotransferase increased [Recovered/Resolved]
  - Aspartate aminotransferase increased [Recovered/Resolved]
  - Blood chloride decreased [Recovered/Resolved]
  - Blood potassium decreased [Recovered/Resolved]
  - Blood sodium decreased [Recovered/Resolved]

NARRATIVE: CASE EVENT DATE: 20160620
